FAERS Safety Report 4714944-4 (Version None)
Quarter: 2005Q3

REPORT INFORMATION
  Report Type: 
  Country: None (occurrence: None)
  Receive Date: 20050715
  Receipt Date: 20050704
  Transmission Date: 20060218
  Serious: Yes (Life-Threatening, Other)
  Sender: FDA-Public Use
  Company Number: TR-JNJFOC-20050606947

PATIENT
  Age: 42 Year
  Sex: Male
  Weight: 60 kg

DRUGS (3)
  1. RISPERDAL CONSTA [Suspect]
     Route: 030
  2. FLUPHENAZINE [Suspect]
  3. PHENPROBAMATE [Suspect]

REACTIONS (2)
  - HYPOTENSION [None]
  - SYNCOPE VASOVAGAL [None]
